FAERS Safety Report 11980889 (Version 2)
Quarter: 2016Q2

REPORT INFORMATION
  Report Type: Spontaneous
  Country: US (occurrence: US)
  Receive Date: 20160129
  Receipt Date: 20160503
  Transmission Date: 20160815
  Serious: No
  Sender: FDA-Public Use
  Company Number: US-AMGEN-USASP2015134380

PATIENT
  Sex: Male

DRUGS (1)
  1. IMLYGIC [Suspect]
     Active Substance: TALIMOGENE LAHERPAREPVEC
     Indication: NEOPLASM MALIGNANT
     Dosage: 4 ML, UNK
     Route: 065

REACTIONS (2)
  - Influenza like illness [Unknown]
  - Pyrexia [Unknown]
